FAERS Safety Report 23401678 (Version 2)
Quarter: 2024Q1

REPORT INFORMATION
  Report Type: Report from Study
  Country: DE (occurrence: DE)
  Receive Date: 20240115
  Receipt Date: 20240119
  Transmission Date: 20240410
  Serious: Yes (Hospitalization)
  Sender: FDA-Public Use
  Company Number: DE-SA-SAC20240110000751

PATIENT
  Age: 50 Year
  Sex: Female
  Weight: 58 kg

DRUGS (8)
  1. ISATUXIMAB [Suspect]
     Active Substance: ISATUXIMAB
     Indication: Plasma cell myeloma
     Dosage: 580 MG
     Route: 041
     Dates: start: 20220512, end: 20220512
  2. ISATUXIMAB [Suspect]
     Active Substance: ISATUXIMAB
     Dosage: 580 MG
     Route: 041
     Dates: start: 20231221, end: 20231221
  3. CARFILZOMIB [Suspect]
     Active Substance: CARFILZOMIB
     Indication: Plasma cell myeloma
     Dosage: 72 MG
     Route: 042
     Dates: start: 20220512, end: 20220512
  4. CARFILZOMIB [Suspect]
     Active Substance: CARFILZOMIB
     Dosage: 72 MG
     Route: 042
     Dates: start: 20231221, end: 20231221
  5. LENALIDOMIDE [Suspect]
     Active Substance: LENALIDOMIDE
     Indication: Plasma cell myeloma
     Dosage: 10 MG
     Route: 048
     Dates: start: 20220512, end: 20220512
  6. LENALIDOMIDE [Suspect]
     Active Substance: LENALIDOMIDE
     Dosage: 10 MG
     Route: 048
     Dates: start: 20231227, end: 20231227
  7. DEXAMETHASONE [Concomitant]
     Active Substance: DEXAMETHASONE
     Indication: Plasma cell myeloma
     Dosage: 8 MG
     Route: 048
     Dates: start: 20220512, end: 20220512
  8. DEXAMETHASONE [Concomitant]
     Active Substance: DEXAMETHASONE
     Dosage: 8 MG
     Route: 048
     Dates: start: 20231221, end: 20231221

REACTIONS (1)
  - Respiratory syncytial virus infection [Recovering/Resolving]

NARRATIVE: CASE EVENT DATE: 20240107
